FAERS Safety Report 7318782-8 (Version None)
Quarter: 2011Q1

REPORT INFORMATION
  Report Type: 
  Country: None (occurrence: None)
  Receive Date: 20110228
  Receipt Date: 20100721
  Transmission Date: 20110831
  Serious: No
  Sender: FDA-Public Use
  Company Number: A0860471A

PATIENT
  Sex: Female

DRUGS (3)
  1. IMITREX [Suspect]
     Route: 058
  2. CLONIDINE [Suspect]
  3. SUMATRIPTAN SUCCINATE [Suspect]
     Dosage: 6MG UNKNOWN
     Route: 058

REACTIONS (3)
  - PRODUCT QUALITY ISSUE [None]
  - DRUG INEFFECTIVE [None]
  - ADVERSE EVENT [None]
